FAERS Safety Report 18898815 (Version 1)
Quarter: 2021Q1

REPORT INFORMATION
  Report Type: Spontaneous
  Country: GB (occurrence: GB)
  Receive Date: 20210216
  Receipt Date: 20210216
  Transmission Date: 20210420
  Serious: Yes (Death)
  Sender: FDA-Public Use
  Company Number: GB-MYLANLABS-2021M1009454

PATIENT
  Age: 85 Year
  Sex: Male
  Weight: 87 kg

DRUGS (13)
  1. PRAVASTATIN. [Suspect]
     Active Substance: PRAVASTATIN
     Indication: PRODUCT USED FOR UNKNOWN INDICATION
     Dosage: 10 MILLIGRAM
     Dates: start: 20190918
  2. DOCUSATE SODIUM. [Concomitant]
     Active Substance: DOCUSATE SODIUM
     Dosage: 2 DOSAGE FORM, BID
     Dates: start: 20201208
  3. MACROGOL [Concomitant]
     Active Substance: POLYETHYLENE GLYCOLS
     Dosage: UNK, PRN,1? 2 SACHETS DAILY AS NEEDED
     Dates: start: 20200724, end: 20201204
  4. OMEPRAZOLE. [Concomitant]
     Active Substance: OMEPRAZOLE
     Indication: GASTROINTESTINAL DISORDER PROPHYLAXIS
     Dosage: 1 DOSAGE FORM, QD,TAKE ONE DAILY TO REDUCE STOMACH ACID
     Dates: start: 20171010
  5. RELETRANS [Concomitant]
     Active Substance: BUPRENORPHINE
     Dosage: 1 DOSAGE FORM, QW
     Route: 062
     Dates: start: 20200529
  6. SALAMOL                            /00139501/ [Concomitant]
     Dosage: 2 DOSAGE FORM, PRN
     Route: 055
     Dates: start: 20171010, end: 20201204
  7. ZOPICLONE [Concomitant]
     Active Substance: ZOPICLONE
     Dosage: 1 DOSAGE FORM, PRN,ONE TO BE TAKEN AT NIGHT AS REQUIRED
     Dates: start: 20191120, end: 20201204
  8. PARACETAMOL [Concomitant]
     Active Substance: ACETAMINOPHEN
     Indication: PAIN
     Dosage: 10 MILLILITER, PRN,UP TO 4 TIMES/DAY FOR PAIN RELIEF
     Dates: start: 20201214
  9. MORPHINE SULFATE. [Concomitant]
     Active Substance: MORPHINE SULFATE
     Dosage: UNK,2,5?5ML EVERY FOUR TO SIX HOURS
     Dates: start: 20200921, end: 20201204
  10. BECLOMETASONE [Concomitant]
     Active Substance: BECLOMETHASONE DIPROPIONATE
     Dosage: TWO PUFFS TWICE DAILY EACH NOSTRIL
     Route: 045
     Dates: start: 20171010, end: 20201204
  11. HYPROMELLOSE [Concomitant]
     Active Substance: HYPROMELLOSES
     Dosage: 1 DOSAGE FORM, QID
     Dates: start: 20201208
  12. ACIDEX                             /01521901/ [Concomitant]
     Active Substance: CALCIUM CARBONATE\SODIUM ALGINATE\SODIUM BICARBONATE
     Dosage: 10 MILLILITER, PRN
     Dates: start: 20201217
  13. SENNA                              /00142201/ [Concomitant]
     Active Substance: SENNA LEAF
     Dosage: 2 DOSAGE FORM, QD,TAKEN AT NIGHT
     Dates: start: 20201208

REACTIONS (2)
  - Rash [Recovered/Resolved]
  - Death [Fatal]
